FAERS Safety Report 7737776-1 (Version None)
Quarter: 2011Q3

REPORT INFORMATION
  Report Type: 
  Country: None (occurrence: None)
  Receive Date: 20110906
  Receipt Date: 20110610
  Transmission Date: 20111222
  Serious: Yes (Other)
  Sender: FDA-Public Use
  Company Number: US-1186082

PATIENT
  Age: 8 Year
  Sex: Male
  Weight: 27.6694 kg

DRUGS (6)
  1. VIACTIV [Concomitant]
  2. MULTI-VITAMIN [Concomitant]
  3. LACTAID [Concomitant]
  4. AUGMENTIN '125' [Concomitant]
  5. CYCLOGYL [Suspect]
     Indication: OPHTHALMOLOGICAL EXAMINATION
     Dosage: 1 GTT OU X3 DOSES OPHTHALMIC
     Route: 047
     Dates: start: 20110425, end: 20110425
  6. COQ10 [Concomitant]

REACTIONS (16)
  - HALLUCINATION, VISUAL [None]
  - GAIT DISTURBANCE [None]
  - FATIGUE [None]
  - COORDINATION ABNORMAL [None]
  - SOMNOLENCE [None]
  - AMNESIA [None]
  - EYE IRRITATION [None]
  - DISORIENTATION [None]
  - ERYTHEMA [None]
  - PYREXIA [None]
  - MYDRIASIS [None]
  - ABNORMAL BEHAVIOUR [None]
  - CONFUSIONAL STATE [None]
  - OCULAR HYPERAEMIA [None]
  - DRUG EFFECT PROLONGED [None]
  - SUDDEN ONSET OF SLEEP [None]
